FAERS Safety Report 16869778 (Version 1)
Quarter: 2019Q3

REPORT INFORMATION
  Report Type: Spontaneous
  Country: US (occurrence: US)
  Receive Date: 20190930
  Receipt Date: 20190930
  Transmission Date: 20191005
  Serious: No
  Sender: FDA-Public Use
  Company Number: US-HTU-2018US017585

PATIENT
  Sex: Female

DRUGS (2)
  1. VALCHLOR [Suspect]
     Active Substance: MECHLORETHAMINE
     Indication: CUTANEOUS T-CELL LYMPHOMA
     Dosage: UNK
     Route: 061
     Dates: start: 20180718
  2. VALCHLOR [Suspect]
     Active Substance: MECHLORETHAMINE
     Indication: CUTANEOUS T-CELL LYMPHOMA
     Dosage: THIN FILM, ONCE DAILY
     Route: 061

REACTIONS (9)
  - Scab [Unknown]
  - Fungal skin infection [Not Recovered/Not Resolved]
  - Paraesthesia [Unknown]
  - Skin discolouration [Unknown]
  - Off label use [Unknown]
  - Inflammation [Unknown]
  - Application site exfoliation [Unknown]
  - Skin exfoliation [Not Recovered/Not Resolved]
  - Skin discolouration [Not Recovered/Not Resolved]
